FAERS Safety Report 10648125 (Version 1)
Quarter: 2014Q4

REPORT INFORMATION
  Report Type: Spontaneous
  Country: US (occurrence: None)
  Receive Date: 20141211
  Receipt Date: 20141211
  Transmission Date: 20150529
  Serious: No
  Sender: FDA-Public Use
  Company Number: None

PATIENT
  Age: 63 Year
  Sex: Male
  Weight: 81.65 kg

DRUGS (1)
  1. CRESTOR [Suspect]
     Active Substance: ROSUVASTATIN CALCIUM
     Dosage: 1 PILL DAILEY, ONCE DAILY, TAKEN BY MOUTH
     Route: 048

REACTIONS (3)
  - Nausea [None]
  - Abdominal pain upper [None]
  - Decreased appetite [None]

NARRATIVE: CASE EVENT DATE: 20141208
